FAERS Safety Report 17433850 (Version 2)
Quarter: 2020Q1

REPORT INFORMATION
  Report Type: Spontaneous
  Country: CA (occurrence: CA)
  Receive Date: 20200219
  Receipt Date: 20200312
  Transmission Date: 20200409
  Serious: Yes (Other)
  Sender: FDA-Public Use
  Company Number: CA-AUROBINDO-AUR-APL-2020-008630

PATIENT
  Age: 69 Year
  Sex: Male
  Weight: 74 kg

DRUGS (1)
  1. AURO-VALSARTAN TABLET [Suspect]
     Active Substance: VALSARTAN
     Indication: HYPERTENSION
     Dosage: 80 MILLIGRAM, ONCE A DAY
     Route: 048

REACTIONS (1)
  - Erectile dysfunction [Recovered/Resolved]
